FAERS Safety Report 20859692 (Version 1)
Quarter: 2022Q2

REPORT INFORMATION
  Report Type: Spontaneous
  Country: AU (occurrence: AU)
  Receive Date: 20220523
  Receipt Date: 20220523
  Transmission Date: 20220721
  Serious: Yes (Other)
  Sender: FDA-Public Use
  Company Number: AU-009507513-2205AUS004752

PATIENT

DRUGS (10)
  1. TEMOZOLOMIDE [Suspect]
     Active Substance: TEMOZOLOMIDE
  2. IBRUTINIB [Suspect]
     Active Substance: IBRUTINIB
     Indication: Product used for unknown indication
     Route: 048
  3. VENETOCLAX [Suspect]
     Active Substance: VENETOCLAX
     Route: 048
  4. DOXYCYCLINE HYCLATE [Suspect]
     Active Substance: DOXYCYCLINE HYCLATE
  5. CARBOPLATIN [Suspect]
     Active Substance: CARBOPLATIN
  6. ETOPOSIDE [Suspect]
     Active Substance: ETOPOSIDE
  7. IFOSFAMIDE [Suspect]
     Active Substance: IFOSFAMIDE
  8. METHOTREXATE [Suspect]
     Active Substance: METHOTREXATE
  9. OBINUTUZUMAB [Suspect]
     Active Substance: OBINUTUZUMAB
  10. RITUXIMAB [Suspect]
     Active Substance: RITUXIMAB

REACTIONS (9)
  - Anaemia [Unknown]
  - Aspergillus infection [Unknown]
  - Atrial fibrillation [Unknown]
  - Cytopenia [Unknown]
  - Febrile neutropenia [Unknown]
  - Haemorrhage [Unknown]
  - Infection [Unknown]
  - Neutropenia [Unknown]
  - Thrombocytopenia [Unknown]
